FAERS Safety Report 21217705 (Version 5)
Quarter: 2022Q4

REPORT INFORMATION
  Report Type: Report from Study
  Country: US (occurrence: US)
  Receive Date: 20220816
  Receipt Date: 20221125
  Transmission Date: 20230113
  Serious: No
  Sender: FDA-Public Use
  Company Number: US-NOVARTISTESTPH-NVSC2022US184147

PATIENT
  Sex: Female

DRUGS (3)
  1. COSENTYX [Suspect]
     Active Substance: SECUKINUMAB
     Indication: Ankylosing spondylitis
     Dosage: 300 MG, QW (FIRST 3 DOSES)
     Route: 065
  2. COSENTYX [Suspect]
     Active Substance: SECUKINUMAB
     Indication: Rheumatoid arthritis
     Dosage: 150 MG, QW
     Route: 058
  3. COSENTYX [Suspect]
     Active Substance: SECUKINUMAB
     Dosage: 300 MG
     Route: 058
     Dates: start: 20221121

REACTIONS (18)
  - Fatigue [Unknown]
  - Musculoskeletal stiffness [Unknown]
  - Injection site reaction [Recovered/Resolved]
  - Injection site bruising [Recovered/Resolved]
  - Injection site haemorrhage [Unknown]
  - Anxiety [Unknown]
  - Asthenia [Unknown]
  - Joint range of motion decreased [Unknown]
  - Arthralgia [Unknown]
  - Pain [Unknown]
  - Ankle fracture [Unknown]
  - COVID-19 [Unknown]
  - Cough [Unknown]
  - Inflammation [Unknown]
  - Arthritis [Unknown]
  - Product preparation error [Unknown]
  - Product use in unapproved indication [Unknown]
  - Drug ineffective [Unknown]
